FAERS Safety Report 15680825 (Version 1)
Quarter: 2018Q4

REPORT INFORMATION
  Report Type: Spontaneous
  Country: US (occurrence: US)
  Receive Date: 20181202
  Receipt Date: 20181202
  Transmission Date: 20190205
  Serious: Yes (Disabling)
  Sender: FDA-Public Use
  Company Number: None

PATIENT
  Age: 61 Year
  Sex: Female
  Weight: 67.5 kg

DRUGS (2)
  1. PROLIA [Suspect]
     Active Substance: DENOSUMAB
     Indication: OSTEOPOROSIS
     Dosage: QUANTITY:1 INJECTION(S);OTHER FREQUENCY:EVERY 6 MONTHS;?
     Route: 030
     Dates: start: 20180810, end: 20180810
  2. CALCIUM [Concomitant]
     Active Substance: CALCIUM

REACTIONS (6)
  - Insomnia [None]
  - Musculoskeletal pain [None]
  - Back pain [None]
  - Swelling [None]
  - Pain in extremity [None]
  - Gait disturbance [None]

NARRATIVE: CASE EVENT DATE: 20180915
